FAERS Safety Report 17144786 (Version 1)
Quarter: 2019Q4

REPORT INFORMATION
  Report Type: Spontaneous
  Country: US (occurrence: US)
  Receive Date: 20191212
  Receipt Date: 20191212
  Transmission Date: 20200122
  Serious: No
  Sender: FDA-Public Use
  Company Number: US-NOVEN PHARMACEUTICALS, INC.-US2019000068

PATIENT

DRUGS (2)
  1. MINIVELLE [Suspect]
     Active Substance: ESTRADIOL
     Indication: OFF LABEL USE
  2. MINIVELLE [Suspect]
     Active Substance: ESTRADIOL
     Indication: HORMONE REPLACEMENT THERAPY
     Dosage: 0.1 MG, UNKNOWN
     Route: 062

REACTIONS (8)
  - Product adhesion issue [Recovered/Resolved]
  - Product prescribing error [Recovered/Resolved]
  - Off label use [Recovered/Resolved]
  - Cold sweat [Recovered/Resolved]
  - Hot flush [Recovered/Resolved]
  - Application site pruritus [Recovered/Resolved]
  - Hyperhidrosis [Recovered/Resolved]
  - Therapy cessation [Not Recovered/Not Resolved]
